FAERS Safety Report 6330355-2 (Version None)
Quarter: 2009Q3

REPORT INFORMATION
  Report Type: 
  Country: None (occurrence: None)
  Receive Date: 20090826
  Receipt Date: 20090826
  Transmission Date: 20100115
  Serious: Yes (Other)
  Sender: FDA-Public Use
  Company Number: None

PATIENT
  Age: 33 Year
  Sex: Female
  Weight: 52.1637 kg

DRUGS (1)
  1. SULFAMETHOXAZOLE AND TRIMETHOPRIM [Suspect]
     Indication: URINARY TRACT INFECTION
     Dosage: 1 TABLET 2 TIMES DAILY PO
     Route: 048
     Dates: start: 20090820, end: 20090824

REACTIONS (6)
  - ARTHRALGIA [None]
  - ASTHENIA [None]
  - CHILLS [None]
  - FATIGUE [None]
  - MYALGIA [None]
  - PYREXIA [None]
